FAERS Safety Report 23098324 (Version 11)
Quarter: 2025Q1

REPORT INFORMATION
  Report Type: Spontaneous
  Country: IN (occurrence: IN)
  Receive Date: 20231023
  Receipt Date: 20250306
  Transmission Date: 20250408
  Serious: Yes (Other)
  Sender: PFIZER
  Company Number: IN-PFIZER INC-2021739353

PATIENT
  Age: 50 Year
  Sex: Female
  Weight: 64.8 kg

DRUGS (7)
  1. PALBOCICLIB [Suspect]
     Active Substance: PALBOCICLIB
     Indication: Breast cancer metastatic
     Route: 048
     Dates: start: 20210417
  2. CALCIUM CARBONATE\CHOLECALCIFEROL [Concomitant]
     Active Substance: CALCIUM CARBONATE\CHOLECALCIFEROL
     Dosage: UNK, OD
  3. LETROZOLE [Concomitant]
     Active Substance: LETROZOLE
     Dosage: 2.5 MG, OD (ONCE A DAY)
  4. ZOLEDRONIC ACID [Concomitant]
     Active Substance: ZOLEDRONIC ACID
  5. ZOLEDRONIC ACID [Concomitant]
     Active Substance: ZOLEDRONIC ACID
     Dosage: 3 MG IN 100 ML NS OVER 20 MINS ; EVERY 3 MONTHLY - W/H DUE TO RAISED CREAT.
  6. CREMAFFIN [Concomitant]
     Dosage: 2 DF (2 TSP PO HS, MEET US ON 23/02 WITH REPORTS (CBC + DIFF, CREAT, MRI WHOLE BODY))
     Route: 048
  7. CALCIUM CARBONATE\CHOLECALCIFEROL [Concomitant]
     Active Substance: CALCIUM CARBONATE\CHOLECALCIFEROL
     Dosage: UNK, OD

REACTIONS (26)
  - Thrombocytopenia [Unknown]
  - Incisional hernia [Unknown]
  - Pain [Unknown]
  - Asthenia [Unknown]
  - Back pain [Unknown]
  - Haemoglobin decreased [Unknown]
  - White blood cell count decreased [Unknown]
  - Red blood cell count decreased [Unknown]
  - Blood creatinine increased [Unknown]
  - Pyrexia [Unknown]
  - Neutrophil count decreased [Unknown]
  - Microcytosis [Unknown]
  - Epistaxis [Unknown]
  - Body temperature decreased [Unknown]
  - Haematocrit decreased [Unknown]
  - Mean cell volume increased [Unknown]
  - Mean cell haemoglobin increased [Unknown]
  - Red cell distribution width increased [Unknown]
  - Macrocytosis [Unknown]
  - Creatinine renal clearance abnormal [Unknown]
  - Mean platelet volume increased [Unknown]
  - Lymphocyte count decreased [Unknown]
  - Mean cell haemoglobin concentration increased [Unknown]
  - Monocyte count increased [Unknown]
  - Blood thyroid stimulating hormone increased [Unknown]
  - Decreased appetite [Unknown]

NARRATIVE: CASE EVENT DATE: 20210504
